FAERS Safety Report 18501965 (Version 1)
Quarter: 2020Q4

REPORT INFORMATION
  Report Type: Spontaneous
  Country: US (occurrence: US)
  Receive Date: 20201113
  Receipt Date: 20201113
  Transmission Date: 20210114
  Serious: Yes (Other)
  Sender: FDA-Public Use
  Company Number: US-ROCHE-2710713

PATIENT
  Age: 50 Year
  Sex: Female
  Weight: 86.26 kg

DRUGS (9)
  1. CYCLOPHOSPHAMIDE. [Concomitant]
     Active Substance: CYCLOPHOSPHAMIDE
     Indication: BREAST CANCER STAGE III
     Dosage: THERAPY ONGOING:NO
     Dates: start: 20170328, end: 20170520
  2. KADCYLA [Suspect]
     Active Substance: ADO-TRASTUZUMAB EMTANSINE
     Indication: BREAST CANCER
     Dosage: THERAPY ONGOING:YES
     Route: 065
     Dates: start: 20181207
  3. 5-FLUOROURACIL [Concomitant]
     Active Substance: FLUOROURACIL
     Indication: BREAST CANCER STAGE III
     Dosage: THERAPY ONGOING:NO
     Dates: start: 20170328, end: 20170520
  4. HERCEPTIN [Suspect]
     Active Substance: TRASTUZUMAB
     Indication: BREAST CANCER STAGE III
     Dosage: THERAPY ONGOING:NO
     Route: 065
     Dates: start: 20161228, end: 20170308
  5. TAXOTERE [Concomitant]
     Active Substance: DOCETAXEL
     Indication: BREAST CANCER STAGE III
     Dosage: THERAPY ONGOING:NO
     Dates: start: 20161228, end: 20170308
  6. EPIRUBICIN [Concomitant]
     Active Substance: EPIRUBICIN
     Indication: BREAST CANCER STAGE III
     Dosage: THERAPY ONGOING:NO
     Dates: start: 20170321, end: 20170520
  7. NERATINIB [Concomitant]
     Active Substance: NERATINIB
     Indication: BREAST CANCER STAGE III
     Dosage: THERAPY ONGOING:YES
     Dates: start: 20200115
  8. PERJETA [Suspect]
     Active Substance: PERTUZUMAB
     Indication: BREAST CANCER STAGE III
     Dosage: THERAPY ONGOING: NO
     Route: 065
     Dates: start: 20161228, end: 20170308
  9. XELODA [Suspect]
     Active Substance: CAPECITABINE
     Indication: BREAST CANCER STAGE III
     Dosage: THERAPY ONGOING:YES
     Route: 065
     Dates: start: 20200115

REACTIONS (3)
  - Ejection fraction decreased [Recovered/Resolved]
  - Malignant pleural effusion [Unknown]
  - Anaemia [Unknown]

NARRATIVE: CASE EVENT DATE: 2019
